FAERS Safety Report 9221554 (Version 3)
Quarter: 2013Q2

REPORT INFORMATION
  Report Type: Spontaneous
  Country: US (occurrence: US)
  Receive Date: 20130410
  Receipt Date: 20130530
  Transmission Date: 20140414
  Serious: Yes (Hospitalization)
  Sender: FDA-Public Use
  Company Number: US-009507513-1304USA002374

PATIENT
  Age: 46 Year
  Sex: Female
  Weight: 101.9 kg

DRUGS (5)
  1. SAPHRIS [Suspect]
     Route: 048
  2. TRAZODONE HYDROCHLORIDE [Concomitant]
     Route: 048
  3. CELEXA [Concomitant]
     Route: 048
  4. LAMICTAL [Concomitant]
     Route: 048
  5. DEPAKOTE [Concomitant]
     Dosage: TOTAL DAILY DOSE: 150 MG
     Route: 048

REACTIONS (1)
  - Oedema peripheral [Recovered/Resolved]
